FAERS Safety Report 4384724-0 (Version None)
Quarter: 2004Q2

REPORT INFORMATION
  Report Type: 
  Country: None (occurrence: None)
  Receive Date: 20040621
  Receipt Date: 20040609
  Transmission Date: 20050107
  Serious: Yes (Life-Threatening, Hospitalization)
  Sender: FDA-Public Use
  Company Number: 2004PK01019

PATIENT
  Age: 43 Year
  Sex: Male

DRUGS (16)
  1. FOSCAVIR [Suspect]
     Indication: CYTOMEGALOVIRUS INFECTION
     Dates: start: 20040206, end: 20040318
  2. VISTIDE [Suspect]
     Indication: CYTOMEGALOVIRUS INFECTION
     Dates: start: 20040227
  3. CYCLOPHOSPHAMIDE [Suspect]
     Indication: NON-HODGKIN'S LYMPHOMA
  4. VANCOMYCIN [Suspect]
     Indication: PYREXIA
     Dates: start: 20040112, end: 20040301
  5. DOXYCYCLINE [Suspect]
     Indication: PYREXIA
     Dates: start: 20040201, end: 20040301
  6. AMBISOME [Concomitant]
  7. CYCLOSPORINE [Concomitant]
  8. GANCICLOVIR [Concomitant]
  9. PENTAMIDINE [Concomitant]
  10. MEROPENEM [Concomitant]
  11. PANTOZOL [Concomitant]
  12. VFEND [Concomitant]
  13. KONAKION [Concomitant]
  14. GRANISETRON [Concomitant]
  15. METRONIDAZOLE [Concomitant]
  16. ACYCLOVIR [Concomitant]

REACTIONS (17)
  - ALANINE AMINOTRANSFERASE INCREASED [None]
  - ASPARTATE AMINOTRANSFERASE INCREASED [None]
  - BLOOD CREATININE INCREASED [None]
  - CYSTITIS HAEMORRHAGIC [None]
  - DIALYSIS [None]
  - HYPOKALAEMIA [None]
  - IMMUNOSUPPRESSION [None]
  - INFECTION [None]
  - LIVER DISORDER [None]
  - MALNUTRITION [None]
  - NEPHROPATHY TOXIC [None]
  - PANCREATITIS ACUTE [None]
  - PNEUMONIA [None]
  - PULMONARY SEPSIS [None]
  - RENAL FAILURE ACUTE [None]
  - RESPIRATORY FAILURE [None]
  - STEM CELL TRANSPLANT [None]
